FAERS Safety Report 24769534 (Version 1)
Quarter: 2024Q4

REPORT INFORMATION
  Report Type: Spontaneous
  Country: AU (occurrence: AU)
  Receive Date: 20241224
  Receipt Date: 20241224
  Transmission Date: 20250115
  Serious: Yes (Other)
  Sender: BAUSCH AND LOMB
  Company Number: AU-MLMSERVICE-20241213-PI288921-00270-7

PATIENT
  Age: 81 Year
  Sex: Male

DRUGS (2)
  1. PREDNISOLONE [Suspect]
     Active Substance: PREDNISOLONE
     Indication: Myelofibrosis
     Dosage: REGULARLY TOOK SHORT COURSES
     Route: 065
  2. PREDNISOLONE [Suspect]
     Active Substance: PREDNISOLONE
     Indication: Dermatitis

REACTIONS (1)
  - Burkholderia pseudomallei infection [Unknown]

NARRATIVE: CASE EVENT DATE: 20210101
